FAERS Safety Report 4445884-6 (Version None)
Quarter: 2004Q3

REPORT INFORMATION
  Report Type: 
  Country: None (occurrence: None)
  Receive Date: 20040907
  Receipt Date: 20040824
  Transmission Date: 20050211
  Serious: Yes (Hospitalization)
  Sender: FDA-Public Use
  Company Number: 2004-BP-07281AU

PATIENT
  Age: 35 Year
  Sex: Male

DRUGS (4)
  1. VIRAMUNE [Suspect]
     Dosage: PO
     Route: 048
  2. COMBIVIR [Suspect]
     Indication: HIV INFECTION
     Dosage: PO
     Route: 048
     Dates: start: 20030616
  3. ABACAVIR (ABACAVIR) [Suspect]
  4. DIDANOSINE [Suspect]

REACTIONS (4)
  - HEPATOMEGALY [None]
  - HYPERHIDROSIS [None]
  - LIVER FUNCTION TEST ABNORMAL [None]
  - PYREXIA [None]
